FAERS Safety Report 17862401 (Version 5)
Quarter: 2020Q3

REPORT INFORMATION
  Report Type: Spontaneous
  Country: IT (occurrence: IT)
  Receive Date: 20200605
  Receipt Date: 20200819
  Transmission Date: 20201103
  Serious: Yes (Hospitalization, Other)
  Sender: FDA-Public Use
  Company Number: IT-AUROBINDO-AUR-APL-2020-026541

PATIENT
  Age: 18 Year
  Sex: Male
  Weight: 53 kg

DRUGS (2)
  1. AMOXICILLIN / CLAVULANIC ACID 875/125MG FILM?COATED TABLET [Suspect]
     Active Substance: AMOXICILLIN\CLAVULANIC ACID
     Dosage: 875/125 MILLIGRAM, ONCE A DAY
     Route: 048
  2. AMOXICILLIN / CLAVULANIC ACID 875/125MG FILM?COATED TABLET [Suspect]
     Active Substance: AMOXICILLIN\CLAVULANIC ACID
     Indication: UPPER RESPIRATORY TRACT INFECTION
     Dosage: 1 DOSAGE FORM, TWO TIMES A DAY
     Route: 048

REACTIONS (5)
  - Colitis ulcerative [Recovered/Resolved]
  - Diarrhoea [Recovered/Resolved]
  - Abdominal pain [Recovered/Resolved]
  - Colitis ischaemic [Recovered/Resolved]
  - Colitis erosive [Recovered/Resolved]
